FAERS Safety Report 7046505-9 (Version None)
Quarter: 2010Q4

REPORT INFORMATION
  Report Type: 
  Country: None (occurrence: None)
  Receive Date: 20101014
  Receipt Date: 20101008
  Transmission Date: 20110411
  Serious: Yes (Hospitalization)
  Sender: FDA-Public Use
  Company Number: PHHO2010PL15504

PATIENT
  Sex: Female
  Weight: 61 kg

DRUGS (4)
  1. ENALAPRIL MALEATE [Suspect]
     Indication: CARDIAC FAILURE CHRONIC
     Dosage: UNK
     Route: 048
     Dates: start: 20100914, end: 20100918
  2. BLINDED LCZ696 LCZ+TAB [Suspect]
     Indication: CARDIAC FAILURE CHRONIC
     Dosage: UNK
     Route: 048
     Dates: start: 20100914, end: 20100918
  3. BLINDED NO TREATMENT RECEIVED NOMED [Suspect]
     Indication: CARDIAC FAILURE CHRONIC
     Dosage: UNK
     Route: 048
     Dates: start: 20100914, end: 20100918
  4. COMPARATOR ENALAPRIL [Suspect]
     Dosage: UNK
     Dates: start: 20100728, end: 20100814

REACTIONS (10)
  - ASTHENIA [None]
  - DEHYDRATION [None]
  - DIVERTICULITIS [None]
  - DUODENAL POLYP [None]
  - DUODENITIS [None]
  - FOOD AVERSION [None]
  - GASTRITIS [None]
  - HYPOTONIA [None]
  - POLYPECTOMY [None]
  - VOMITING [None]
